FAERS Safety Report 19442141 (Version 1)
Quarter: 2021Q2

REPORT INFORMATION
  Report Type: Spontaneous
  Country: US (occurrence: US)
  Receive Date: 20210621
  Receipt Date: 20210621
  Transmission Date: 20210717
  Serious: Yes (Other)
  Sender: FDA-Public Use
  Company Number: US-TORRENT-00011137

PATIENT
  Age: 69 Year
  Sex: Male

DRUGS (4)
  1. PRAMIPEXOLE. [Concomitant]
     Active Substance: PRAMIPEXOLE
     Indication: BIPOLAR DISORDER
     Dates: end: 201707
  2. FLUOXETINE [Suspect]
     Active Substance: FLUOXETINE HYDROCHLORIDE
     Indication: BIPOLAR DISORDER
     Dates: end: 201612
  3. GABAPENTIN. [Concomitant]
     Active Substance: GABAPENTIN
     Indication: BIPOLAR DISORDER
     Dosage: BEDTIME
     Dates: end: 201611
  4. LAMOTRIGINE. [Concomitant]
     Active Substance: LAMOTRIGINE
     Indication: BIPOLAR DISORDER
     Dosage: AM
     Dates: start: 201803

REACTIONS (4)
  - Irritability [Recovering/Resolving]
  - Condition aggravated [Recovering/Resolving]
  - Mood altered [Recovering/Resolving]
  - Bipolar I disorder [Recovering/Resolving]

NARRATIVE: CASE EVENT DATE: 2016
